FAERS Safety Report 15857640 (Version 1)
Quarter: 2019Q1

REPORT INFORMATION
  Report Type: Spontaneous
  Country: US (occurrence: US)
  Receive Date: 20190122
  Receipt Date: 20190122
  Transmission Date: 20190417
  Serious: Yes (Other)
  Sender: FDA-Public Use
  Company Number: None

PATIENT
  Age: 38 Year
  Sex: Female
  Weight: 70.76 kg

DRUGS (4)
  1. LARISSA  BIRTH CONTROL PILL [Concomitant]
  2. NEXPLANON [Suspect]
     Active Substance: ETONOGESTREL
  3. WELLBUTRIN [Concomitant]
     Active Substance: BUPROPION HYDROCHLORIDE
  4. XANAX [Concomitant]
     Active Substance: ALPRAZOLAM

REACTIONS (6)
  - Menorrhagia [None]
  - Complication associated with device [None]
  - Weight increased [None]
  - Insomnia [None]
  - Depressed mood [None]
  - Menstrual disorder [None]

NARRATIVE: CASE EVENT DATE: 20190119
